FAERS Safety Report 25216237 (Version 1)
Quarter: 2025Q2

REPORT INFORMATION
  Report Type: Report from Study
  Country: CO (occurrence: CO)
  Receive Date: 20250418
  Receipt Date: 20250418
  Transmission Date: 20250716
  Serious: Yes (Other)
  Sender: UCB
  Company Number: CO-UCBSA-2025022759

PATIENT
  Age: 75 Year
  Sex: Male

DRUGS (1)
  1. ROTIGOTINE [Suspect]
     Active Substance: ROTIGOTINE
     Indication: Parkinson^s disease
     Dosage: 4 MILLIGRAM, ONCE DAILY (QD)
     Route: 062
     Dates: start: 20250331, end: 20250407

REACTIONS (6)
  - Hallucination [Not Recovered/Not Resolved]
  - Loss of consciousness [Not Recovered/Not Resolved]
  - Feeling abnormal [Not Recovered/Not Resolved]
  - Daydreaming [Not Recovered/Not Resolved]
  - Disorientation [Not Recovered/Not Resolved]
  - Distractibility [Not Recovered/Not Resolved]

NARRATIVE: CASE EVENT DATE: 20250331
